FAERS Safety Report 11843997 (Version 1)
Quarter: 2015Q4

REPORT INFORMATION
  Report Type: Spontaneous
  Country: FR (occurrence: FR)
  Receive Date: 20151217
  Receipt Date: 20151217
  Transmission Date: 20160305
  Serious: Yes (Other)
  Sender: FDA-Public Use
  Company Number: PHHY2015FR163219

PATIENT
  Age: 66 Year
  Sex: Female

DRUGS (2)
  1. ZYKADIA [Suspect]
     Active Substance: CERITINIB
     Indication: BRONCHIAL CARCINOMA
     Dosage: 5 DF, QD
     Route: 048
     Dates: start: 20150902
  2. ZYKADIA [Suspect]
     Active Substance: CERITINIB
     Dosage: 4 DF, QD
     Route: 048
     Dates: end: 20151115

REACTIONS (8)
  - Apnoea [Recovered/Resolved]
  - Muscular weakness [Recovered/Resolved]
  - Vomiting [Recovered/Resolved]
  - Asthenia [Recovered/Resolved]
  - Weight decreased [Recovered/Resolved]
  - Decreased appetite [Recovered/Resolved]
  - Diarrhoea [Recovered/Resolved]
  - Nausea [Recovered/Resolved]

NARRATIVE: CASE EVENT DATE: 20150909
